FAERS Safety Report 23039537 (Version 1)
Quarter: 2023Q4

REPORT INFORMATION
  Report Type: Spontaneous
  Country: PL (occurrence: PL)
  Receive Date: 20231006
  Receipt Date: 20231006
  Transmission Date: 20240110
  Serious: Yes (Hospitalization, Other)
  Sender: FDA-Public Use
  Company Number: PL-SUN PHARMACEUTICAL INDUSTRIES LTD-2023R1-410361

PATIENT
  Age: 65 Year
  Sex: Male

DRUGS (3)
  1. CARBOPLATIN [Suspect]
     Active Substance: CARBOPLATIN
     Indication: Squamous cell carcinoma
     Dosage: AUC 5, 4 CYCLES
     Route: 065
     Dates: start: 202206, end: 202208
  2. PACLITAXEL [Suspect]
     Active Substance: PACLITAXEL
     Indication: Squamous cell carcinoma
     Dosage: 200 MILLIGRAM/SQ. METER, 4 CYCLES
     Route: 065
     Dates: start: 202206, end: 202208
  3. PEMBROLIZUMAB [Suspect]
     Active Substance: PEMBROLIZUMAB
     Indication: Squamous cell carcinoma
     Dosage: 200 MILLIGRAM EVERY 3 WEEKS, 4 CYCLES
     Route: 042
     Dates: start: 202206, end: 202208

REACTIONS (5)
  - Hepatotoxicity [Recovering/Resolving]
  - Peripheral sensory neuropathy [Recovering/Resolving]
  - Weight increased [Recovering/Resolving]
  - Therapy partial responder [Unknown]
  - Immune-mediated hypothyroidism [Recovering/Resolving]
